FAERS Safety Report 9496858 (Version 1)
Quarter: 2013Q3

REPORT INFORMATION
  Report Type: Spontaneous
  Country: US (occurrence: US)
  Receive Date: 20130904
  Receipt Date: 20130904
  Transmission Date: 20140515
  Serious: No
  Sender: FDA-Public Use
  Company Number: US-009507513-1309USA000252

PATIENT
  Sex: Female

DRUGS (1)
  1. JANUVIA [Suspect]
     Indication: TYPE 2 DIABETES MELLITUS
     Dosage: 100 MG/ ONE TABLET PER DAY
     Route: 048
     Dates: start: 201208

REACTIONS (3)
  - Drug dose omission [Unknown]
  - Medication residue present [Unknown]
  - No adverse event [Unknown]
